FAERS Safety Report 15731696 (Version 4)
Quarter: 2019Q1

REPORT INFORMATION
  Report Type: Spontaneous
  Country: DE (occurrence: DE)
  Receive Date: 20181217
  Receipt Date: 20190226
  Transmission Date: 20190417
  Serious: Yes (Disabling)
  Sender: FDA-Public Use
  Company Number: DE-BAUSCH-BL-2018-034170

PATIENT
  Age: 23 Year
  Sex: Male
  Weight: 70 kg

DRUGS (3)
  1. ALDARA [Suspect]
     Active Substance: IMIQUIMOD
     Route: 061
     Dates: start: 20160613
  2. ALDARA [Suspect]
     Active Substance: IMIQUIMOD
     Route: 062
     Dates: start: 201606
  3. ALDARA [Suspect]
     Active Substance: IMIQUIMOD
     Indication: ANOGENITAL WARTS
     Route: 061
     Dates: start: 20160407, end: 20160613

REACTIONS (9)
  - Poor quality sleep [Not Recovered/Not Resolved]
  - Headache [Recovering/Resolving]
  - Muscle contractions involuntary [Unknown]
  - Flank pain [Recovering/Resolving]
  - Abdominal pain [Recovering/Resolving]
  - Tinnitus [Not Recovered/Not Resolved]
  - Arthralgia [Recovering/Resolving]
  - Myalgia [Recovering/Resolving]
  - Muscle spasms [Recovering/Resolving]

NARRATIVE: CASE EVENT DATE: 201609
